FAERS Safety Report 26212966 (Version 1)
Quarter: 2025Q4

REPORT INFORMATION
  Report Type: Spontaneous
  Country: CN (occurrence: CN)
  Receive Date: 20251230
  Receipt Date: 20251230
  Transmission Date: 20260117
  Serious: Yes (Other)
  Sender: RANBAXY
  Company Number: CN-SUN PHARMACEUTICAL INDUSTRIES INC-2025R1-543986

PATIENT
  Age: 48 Year
  Sex: Female

DRUGS (1)
  1. DOXORUBICIN [Suspect]
     Active Substance: DOXORUBICIN
     Indication: Cardiac neoplasm malignant
     Dosage: 40 MILLIGRAM, 16-H CONTINUOUS INTRAVENOUS INFUSION VIA AN ELECTRONIC PUMP
     Route: 042

REACTIONS (3)
  - Disease progression [Unknown]
  - Leukopenia [Recovering/Resolving]
  - Fatigue [Recovering/Resolving]
